FAERS Safety Report 15484485 (Version 1)
Quarter: 2018Q4

REPORT INFORMATION
  Report Type: Spontaneous
  Country: FR (occurrence: FR)
  Receive Date: 20181010
  Receipt Date: 20181010
  Transmission Date: 20190205
  Serious: Yes (Life-Threatening)
  Sender: FDA-Public Use
  Company Number: FR-ANIPHARMA-2018-FR-000155

PATIENT
  Age: 86 Year
  Sex: Male
  Weight: 108 kg

DRUGS (5)
  1. CEFIXIME. [Suspect]
     Active Substance: CEFIXIME
     Dosage: 400 MG DAILY
     Route: 048
  2. CIPROFLOXACIN. [Suspect]
     Active Substance: CIPROFLOXACIN
     Dosage: 1000 MG DAILY
     Route: 048
     Dates: start: 201807, end: 20180806
  3. BICALUTAMIDE. [Suspect]
     Active Substance: BICALUTAMIDE
     Indication: PROSTATE CANCER
     Dosage: 150MG DAILY
     Route: 048
     Dates: start: 20180522
  4. TAMOXIFEN [Suspect]
     Active Substance: TAMOXIFEN
     Dosage: 20 MG WEEK
     Route: 048
     Dates: start: 20180522
  5. XATRAL [Suspect]
     Active Substance: ALFUZOSIN
     Route: 048
     Dates: start: 20180522

REACTIONS (2)
  - Torsade de pointes [Unknown]
  - Cardiac arrest [Unknown]

NARRATIVE: CASE EVENT DATE: 20180807
